FAERS Safety Report 5424566-8 (Version None)
Quarter: 2007Q3

REPORT INFORMATION
  Report Type: 
  Country: None (occurrence: None)
  Receive Date: 20070822
  Receipt Date: 20040223
  Transmission Date: 20080115
  Serious: Yes (Other)
  Sender: FDA-Public Use
  Company Number: 6007469

PATIENT
  Age: 43 Year
  Sex: Female

DRUGS (4)
  1. METFORMIN HCL [Suspect]
     Indication: DIABETES MELLITUS
     Dosage: 2000 MG ORAL
     Route: 048
     Dates: start: 20030701, end: 20040112
  2. BLINDED STUDY MEDICATION [Suspect]
     Indication: TYPE 2 DIABETES MELLITUS
     Dosage: ORAL
     Route: 048
     Dates: start: 20031113, end: 20040112
  3. FLUCONAZOLE [Suspect]
     Indication: DRUG USE FOR UNKNOWN INDICATION
     Dates: start: 20031113, end: 20040112
  4. RUBELLA VACCINE (RUBELLA VIRUS VACCINE LIVE ATTENUATED) [Suspect]
     Indication: IMMUNISATION
     Dates: start: 20031120, end: 20031120

REACTIONS (4)
  - ABORTION INDUCED [None]
  - BLIGHTED OVUM [None]
  - DRUG EXPOSURE DURING PREGNANCY [None]
  - UNINTENDED PREGNANCY [None]
